FAERS Safety Report 6425878-1 (Version None)
Quarter: 2009Q4

REPORT INFORMATION
  Report Type: 
  Country: None (occurrence: None)
  Receive Date: 20091030
  Receipt Date: 20091016
  Transmission Date: 20100525
  Serious: Yes (Hospitalization)
  Sender: FDA-Public Use
  Company Number: 2009AC000304

PATIENT
  Age: 47 Year
  Sex: Male

DRUGS (47)
  1. DIGOXIN [Suspect]
     Dosage: 0.25 MG; QD; PO
     Route: 048
     Dates: start: 20040101, end: 20080101
  2. GLUCOPHAGE [Concomitant]
  3. GLYBURIDE [Concomitant]
  4. COREG [Concomitant]
  5. ALDACTONE [Concomitant]
  6. MONOPRIL [Concomitant]
  7. LASIX [Concomitant]
  8. METOLAZONE [Concomitant]
  9. TOPROL-XL [Concomitant]
  10. FOSINOPRIL SODIUM [Concomitant]
  11. ALLOPURINOL [Concomitant]
  12. METFORMIN HCL [Concomitant]
  13. HYDROCODONE [Concomitant]
  14. CRESTOR [Concomitant]
  15. SPIRONOLACTONE [Concomitant]
  16. GLIPIZIDE [Concomitant]
  17. TRAZODONE HCL [Concomitant]
  18. TAMADOL [Concomitant]
  19. BACLOFEN [Concomitant]
  20. SULFAMETHOXAZOLE [Concomitant]
  21. AMOXICILLIN [Concomitant]
  22. WARFARIN SODIUM [Concomitant]
  23. PROMETHAZINE [Concomitant]
  24. FOLIC ACID [Concomitant]
  25. VITAMIN B COMPLEX CAP [Concomitant]
  26. ALTACE [Concomitant]
  27. LEXAPRO [Concomitant]
  28. NEXIUM [Concomitant]
  29. AVELOX [Concomitant]
  30. PRAVASTATIN [Concomitant]
  31. THEOPHYLLINE [Concomitant]
  32. ACETYLCYSTEINE [Concomitant]
  33. GABAPENTIN [Concomitant]
  34. LIPITOR [Concomitant]
  35. SKELAXIN [Concomitant]
  36. POTASSIUM CHLORIDE [Concomitant]
  37. BIDEX [Concomitant]
  38. BENZONATE [Concomitant]
  39. CELEBREX [Concomitant]
  40. ZOCOR [Concomitant]
  41. CARVEDILOL [Concomitant]
  42. ASPIRIN [Concomitant]
  43. PREDNISONE [Concomitant]
  44. HYDRALAZINE HCL [Concomitant]
  45. AMOXICILLIN [Concomitant]
  46. METRONIDAZOLE [Concomitant]
  47. ACETAMINOPHEN AND HYDROCODONE BITARTRATE [Concomitant]

REACTIONS (38)
  - AGGRESSION [None]
  - AIR EMBOLISM [None]
  - ASTHENIA [None]
  - BACK DISORDER [None]
  - BALANCE DISORDER [None]
  - BLOOD POTASSIUM INCREASED [None]
  - BLOOD UREA INCREASED [None]
  - CARDIOMYOPATHY [None]
  - CEREBELLAR ISCHAEMIA [None]
  - CHEST PAIN [None]
  - COGNITIVE DISORDER [None]
  - COMA [None]
  - COORDINATION ABNORMAL [None]
  - CORONARY ARTERY DISEASE [None]
  - DEPRESSION [None]
  - DIABETES MELLITUS [None]
  - DIARRHOEA [None]
  - DIZZINESS [None]
  - DYSPNOEA [None]
  - ECCHYMOSIS [None]
  - ECONOMIC PROBLEM [None]
  - ENCEPHALOPATHY [None]
  - FALL [None]
  - FATIGUE [None]
  - FLUID RETENTION [None]
  - GAIT DISTURBANCE [None]
  - GASTROOESOPHAGEAL REFLUX DISEASE [None]
  - HEADACHE [None]
  - HICCUPS [None]
  - HYPERKERATOSIS [None]
  - HYPERTENSION [None]
  - INJURY [None]
  - INSOMNIA [None]
  - MEMORY IMPAIRMENT [None]
  - MUSCULAR WEAKNESS [None]
  - MYOPATHY [None]
  - OEDEMA PERIPHERAL [None]
  - PAIN IN EXTREMITY [None]
